FAERS Safety Report 10200860 (Version 3)
Quarter: 2014Q3

REPORT INFORMATION
  Report Type: Spontaneous
  Country: NO (occurrence: DK)
  Receive Date: 20140528
  Receipt Date: 20140725
  Transmission Date: 20150326
  Serious: Yes (Hospitalization, Other)
  Sender: FDA-Public Use
  Company Number: NO-JNJFOC-20140513727

PATIENT
  Age: 46 Year
  Sex: Female

DRUGS (2)
  1. XARELTO [Suspect]
     Active Substance: RIVAROXABAN
     Indication: PRODUCT USED FOR UNKNOWN INDICATION
     Route: 048
     Dates: start: 2013, end: 20140509
  2. LIPITOR [Concomitant]
     Active Substance: ATORVASTATIN CALCIUM
     Route: 065

REACTIONS (1)
  - Cerebral infarction [Unknown]

NARRATIVE: CASE EVENT DATE: 20140505
